FAERS Safety Report 7673425-9 (Version None)
Quarter: 2011Q3

REPORT INFORMATION
  Report Type: 
  Country: None (occurrence: None)
  Receive Date: 20110810
  Receipt Date: 20110805
  Transmission Date: 20111222
  Serious: No
  Sender: FDA-Public Use
  Company Number: US-PFIZER INC-2011180193

PATIENT
  Sex: Male

DRUGS (1)
  1. TOVIAZ [Suspect]
     Dosage: 200 MG, UNK
     Route: 048
     Dates: start: 20110101

REACTIONS (3)
  - DIZZINESS [None]
  - SOMNOLENCE [None]
  - MEDICATION ERROR [None]
